FAERS Safety Report 4498114-3 (Version None)
Quarter: 2004Q3

REPORT INFORMATION
  Report Type: 
  Country: None (occurrence: None)
  Receive Date: 20040927
  Receipt Date: 20040608
  Transmission Date: 20050211
  Serious: No
  Sender: FDA-Public Use
  Company Number: USA040669633

PATIENT
  Age: 29 Year
  Sex: Female
  Weight: 56 kg

DRUGS (3)
  1. STRATTERA [Suspect]
     Indication: ATTENTION DEFICIT/HYPERACTIVITY DISORDER
     Dosage: 18 MG IN THE MORNING
     Dates: start: 20040607
  2. ALBUTEROL [Concomitant]
  3. EPIPEN (EPINEPHRINE) [Concomitant]

REACTIONS (4)
  - NAUSEA [None]
  - PULSE PRESSURE INCREASED [None]
  - SENSATION OF HEAVINESS [None]
  - SOMNOLENCE [None]
